FAERS Safety Report 7672745-1 (Version None)
Quarter: 2011Q3

REPORT INFORMATION
  Report Type: 
  Country: None (occurrence: None)
  Receive Date: 20110804
  Receipt Date: 20110721
  Transmission Date: 20111222
  Serious: Yes (Hospitalization, Other)
  Sender: FDA-Public Use
  Company Number: EU-2011-10093

PATIENT
  Age: 64 Year
  Sex: Male

DRUGS (16)
  1. CILOSTAZOL [Suspect]
     Indication: INTERMITTENT CLAUDICATION
     Dosage: 200 MG MILIGRAM(S), DAILY DOSE, ORAL
     Route: 048
     Dates: start: 20110702
  2. CILOSTAZOL [Suspect]
     Indication: INTERMITTENT CLAUDICATION
     Dosage: 200 MG MILIGRAM(S), DAILY DOSE, ORAL
     Route: 048
     Dates: start: 20100202, end: 20110516
  3. METFORMIN HCL [Suspect]
     Indication: TYPE 2 DIABETES MELLITUS
     Dosage: 1.7 G GRAMS(S), DAILY DOSE, ORAL
     Route: 048
     Dates: end: 20110516
  4. ALBUTEROL SULFATE [Concomitant]
  5. SPIRIVA [Concomitant]
  6. AMLODIPINE [Concomitant]
  7. RIFAMPICINE (RIFAMPICINE) [Concomitant]
  8. ETHAMBUTOL HYDROCHLORIDE [Concomitant]
  9. ASCORBIC ACID [Concomitant]
  10. PYRIDOXINE (PYRIDOXINE) [Concomitant]
  11. CALCIUM SANDOZ + D (CALCIUM CARBONATE, CALCIUM LACTATE GLUCONATE, COLE [Concomitant]
  12. POTASSIUM BICARBONATE (POTASSIUM BICARBONATE) [Concomitant]
  13. RIFATER [Concomitant]
  14. INSULIN [Concomitant]
  15. SERETIDE (FLUTICASONE PROPIONATE, SALMETEROL XINAFOATE) [Concomitant]
  16. ISONIAZIDE (ISONIAZIDE) [Concomitant]

REACTIONS (8)
  - RENAL FAILURE ACUTE [None]
  - VOMITING [None]
  - DEHYDRATION [None]
  - URINE OUTPUT DECREASED [None]
  - TUBERCULOSIS [None]
  - LACTIC ACIDOSIS [None]
  - HAEMOPTYSIS [None]
  - NAUSEA [None]
